FAERS Safety Report 19393505 (Version 2)
Quarter: 2021Q2

REPORT INFORMATION
  Report Type: Report from Study
  Country: GB (occurrence: GB)
  Receive Date: 20210609
  Receipt Date: 20210629
  Transmission Date: 20210717
  Serious: Yes (Hospitalization)
  Sender: FDA-Public Use
  Company Number: GB-ROCHE-1226880

PATIENT
  Age: 50 Year
  Sex: Female

DRUGS (32)
  1. PERTUZUMAB. [Concomitant]
     Active Substance: PERTUZUMAB
     Indication: BREAST CANCER
     Dosage: ON 06/JUN/2013,  SHE RECEIVED THE DOSE OF PERTUZUMAB PRIOR TO THE EVENT.?ON 27/JUN/2013, THE THERAPY
     Dates: start: 20130516
  2. PERTUZUMAB. [Concomitant]
     Active Substance: PERTUZUMAB
     Route: 042
     Dates: start: 20130711
  3. GELCLAIR (UNITED KINGDOM) [Concomitant]
     Route: 065
     Dates: start: 20130516
  4. TRASTUZUMAB. [Suspect]
     Active Substance: TRASTUZUMAB
     Indication: BREAST CANCER
     Route: 065
     Dates: start: 20130612
  5. FUROSEMIDE. [Concomitant]
     Active Substance: FUROSEMIDE
     Dates: start: 20130524, end: 20130528
  6. PARACETAMOL [Concomitant]
     Active Substance: ACETAMINOPHEN
     Dates: start: 201303
  7. PACLITAXEL. [Suspect]
     Active Substance: PACLITAXEL
     Indication: BREAST CANCER
     Dosage: ON 12/JUN/2013, SHE RECEIVED TRASTUZUMAB PRIOR TO EVENT.?ON 19/JUN/2013, THERAPY WITH TRASTUZUMAB WA
     Route: 042
     Dates: start: 20130522
  8. PACLITAXEL. [Suspect]
     Active Substance: PACLITAXEL
     Route: 042
     Dates: start: 20130711
  9. FUROSEMIDE. [Concomitant]
     Active Substance: FUROSEMIDE
     Dates: start: 20130613, end: 20130618
  10. FUROSEMIDE. [Concomitant]
     Active Substance: FUROSEMIDE
     Dates: start: 20130619, end: 20130710
  11. THYROXINE [Concomitant]
     Active Substance: LEVOTHYROXINE
     Dates: start: 200110, end: 20130621
  12. TRASTUZUMAB. [Suspect]
     Active Substance: TRASTUZUMAB
     Indication: BREAST CANCER
     Dosage: LAST DOSE PRIOR TO FIRST SAE: 16/MAY/2013?LOADING DOSE?ON 27/JUN/2013, SHE RECEIVED TRASTUZUMAB PRIO
     Route: 041
     Dates: start: 20130516
  13. DEXAMETHASONE. [Concomitant]
     Active Substance: DEXAMETHASONE
     Dates: start: 20130511, end: 20130517
  14. DEXAMETHASONE. [Concomitant]
     Active Substance: DEXAMETHASONE
     Dates: start: 20130525, end: 20130612
  15. LOPERAMIDE [Concomitant]
     Active Substance: LOPERAMIDE
     Dates: start: 20130523, end: 20130526
  16. FUROSEMIDE. [Concomitant]
     Active Substance: FUROSEMIDE
     Dates: start: 20130516, end: 20130519
  17. PERTUZUMAB. [Concomitant]
     Active Substance: PERTUZUMAB
     Route: 065
     Dates: start: 20130729
  18. DEXAMETHASONE. [Concomitant]
     Active Substance: DEXAMETHASONE
     Dates: end: 20130505
  19. DEXAMETHASONE. [Concomitant]
     Active Substance: DEXAMETHASONE
     Dates: start: 20130520, end: 20130521
  20. LYRICA [Concomitant]
     Active Substance: PREGABALIN
     Dates: start: 201304
  21. MST [MORPHINE SULFATE] [Concomitant]
     Active Substance: MORPHINE SULFATE
     Dates: start: 201304
  22. RANITIDINE. [Concomitant]
     Active Substance: RANITIDINE
     Dates: start: 20130523
  23. TRASTUZUMAB. [Suspect]
     Active Substance: TRASTUZUMAB
     Route: 042
     Dates: start: 20130711
  24. DEXAMETHASONE. [Concomitant]
     Active Substance: DEXAMETHASONE
     Dates: start: 20130505, end: 20130510
  25. DEXAMETHASONE. [Concomitant]
     Active Substance: DEXAMETHASONE
     Dates: start: 20130511, end: 20130517
  26. TRASTUZUMAB. [Suspect]
     Active Substance: TRASTUZUMAB
     Route: 042
     Dates: start: 20130606
  27. DEXAMETHASONE. [Concomitant]
     Active Substance: DEXAMETHASONE
     Dates: start: 20130521, end: 20130524
  28. DICLOFENAC [Concomitant]
     Active Substance: DICLOFENAC
     Dates: start: 201301
  29. GELCLAIR (UNITED KINGDOM) [Concomitant]
     Dates: start: 20130719
  30. LOPERAMIDE [Concomitant]
     Active Substance: LOPERAMIDE
     Dates: start: 20130729
  31. METOCLOPRAMIDE. [Concomitant]
     Active Substance: METOCLOPRAMIDE
     Dosage: INDICATION: PRE?MEDICATION
     Dates: start: 20130516
  32. SEVREDOL [Concomitant]
     Active Substance: MORPHINE
     Dates: start: 201304

REACTIONS (2)
  - Cellulitis [Recovered/Resolved]
  - Infusion related reaction [Recovered/Resolved]

NARRATIVE: CASE EVENT DATE: 20130516
